FAERS Safety Report 8620493-3 (Version None)
Quarter: 2012Q3

REPORT INFORMATION
  Report Type: 
  Country: None (occurrence: None)
  Receive Date: 20120824
  Receipt Date: 20120817
  Transmission Date: 20120928
  Serious: Yes (Other)
  Sender: FDA-Public Use
  Company Number: US-ABBOTT-12P-163-0969551-00

PATIENT
  Age: 37 Year
  Sex: Female

DRUGS (8)
  1. COREG [Concomitant]
     Indication: HYPERTENSION
  2. POTASSIUM [Concomitant]
     Indication: CROHN'S DISEASE
     Dosage: 1 TBS DAILY
  3. CALCIUM [Concomitant]
     Indication: CROHN'S DISEASE
     Dosage: DAILY
  4. LOSARTAN POTASSIUM [Concomitant]
     Indication: HYPERTENSION
     Dosage: 100 MG DAILY
  5. VITAMIN D [Concomitant]
     Indication: CROHN'S DISEASE
     Dosage: DAILY
  6. VITAMIN B-12 [Concomitant]
     Indication: CROHN'S DISEASE
  7. SPIRONOLACTONE [Concomitant]
     Indication: CONGENITAL CYSTIC KIDNEY DISEASE
     Dosage: 25 MG DAILY
  8. HUMIRA [Suspect]
     Indication: CROHN'S DISEASE
     Dates: start: 20120601

REACTIONS (2)
  - DIARRHOEA [None]
  - BLOOD POTASSIUM DECREASED [None]
